FAERS Safety Report 7623306-1 (Version None)
Quarter: 2011Q3

REPORT INFORMATION
  Report Type: 
  Country: None (occurrence: None)
  Receive Date: 20110720
  Receipt Date: 20110714
  Transmission Date: 20111222
  Serious: Yes (Death)
  Sender: FDA-Public Use
  Company Number: US-PFIZER INC-2011160466

PATIENT
  Sex: Male

DRUGS (1)
  1. TORISEL [Suspect]
     Indication: NEOPLASM MALIGNANT
     Dosage: 25 MG, WEEKLY
     Dates: start: 20110103, end: 20110128

REACTIONS (1)
  - DEATH [None]
